FAERS Safety Report 21420823 (Version 1)
Quarter: 2022Q4

REPORT INFORMATION
  Report Type: Spontaneous
  Country: US (occurrence: US)
  Receive Date: 20221007
  Receipt Date: 20221007
  Transmission Date: 20230113
  Serious: Yes (Hospitalization, Other)
  Sender: FDA-Public Use
  Company Number: US-SUN PHARMACEUTICAL INDUSTRIES LTD-2022R1-357816

PATIENT
  Age: 30 Year
  Sex: Male

DRUGS (1)
  1. ACETAMINOPHEN [Suspect]
     Active Substance: ACETAMINOPHEN
     Indication: Product used for unknown indication
     Dosage: 500 MILLIGRAM/50 TABLETS
     Route: 065

REACTIONS (5)
  - Renal failure [Recovered/Resolved]
  - Overdose [Unknown]
  - Sulphaemoglobinaemia [Recovered/Resolved]
  - Methaemoglobinaemia [Recovered/Resolved]
  - Liver injury [Recovered/Resolved]
